FAERS Safety Report 5307489-4 (Version None)
Quarter: 2007Q2

REPORT INFORMATION
  Report Type: 
  Country: None (occurrence: None)
  Receive Date: 20070419
  Receipt Date: 20070410
  Transmission Date: 20071010
  Serious: Yes (Hospitalization)
  Sender: FDA-Public Use
  Company Number: 2007BI007814

PATIENT
  Sex: Female

DRUGS (1)
  1. AVONEX [Suspect]
     Indication: DRUG USE FOR UNKNOWN INDICATION
     Dosage: ; IM
     Route: 030
     Dates: start: 20020301

REACTIONS (10)
  - ANIMAL BITE [None]
  - ASTHENIA [None]
  - COGNITIVE DISORDER [None]
  - DEPRESSION [None]
  - INJECTION SITE DISCOLOURATION [None]
  - INJECTION SITE RASH [None]
  - INJECTION SITE URTICARIA [None]
  - RASH MACULAR [None]
  - TENDON INJURY [None]
  - VERTIGO [None]
